FAERS Safety Report 4323350-6 (Version None)
Quarter: 2004Q1

REPORT INFORMATION
  Report Type: 
  Country: None (occurrence: None)
  Receive Date: 20040323
  Receipt Date: 20040209
  Transmission Date: 20041129
  Serious: No
  Sender: FDA-Public Use
  Company Number: USA040258914

PATIENT
  Sex: Male

DRUGS (4)
  1. CIALIS [Suspect]
     Dosage: 10 MG
  2. VIOXX [Concomitant]
  3. VALTREX [Concomitant]
  4. FLOMAX [Concomitant]

REACTIONS (1)
  - DRUG INEFFECTIVE [None]
